FAERS Safety Report 6661899-1 (Version None)
Quarter: 2010Q1

REPORT INFORMATION
  Report Type: 
  Country: None (occurrence: None)
  Receive Date: 20100331
  Receipt Date: 20091002
  Transmission Date: 20100710
  Serious: No
  Sender: FDA-Public Use
  Company Number: US-BRISTOL-MYERS SQUIBB COMPANY-14788384

PATIENT
  Age: 76 Year
  Sex: Male

DRUGS (2)
  1. ERBITUX [Suspect]
     Indication: LARYNGEAL CANCER
     Dosage: WEEK 1-7;WEEK 8 OFF, ONGOING
     Route: 042
     Dates: start: 20080728
  2. TAXOL [Concomitant]
     Indication: LARYNGEAL CANCER
     Dosage: WEEK 1-6;WEEK 8 OFF
     Route: 042
     Dates: start: 20080728

REACTIONS (1)
  - INJECTION SITE EXTRAVASATION [None]
